FAERS Safety Report 12881006 (Version 1)
Quarter: 2016Q4

REPORT INFORMATION
  Report Type: Spontaneous
  Country: US (occurrence: US)
  Receive Date: 20161025
  Receipt Date: 20161025
  Transmission Date: 20170207
  Serious: No
  Sender: FDA-Public Use
  Company Number: US-JNJFOC-20160812114

PATIENT
  Sex: Male

DRUGS (1)
  1. RISPERDAL CONSTA [Suspect]
     Active Substance: RISPERIDONE
     Indication: SCHIZOPHRENIA
     Route: 030

REACTIONS (9)
  - Crying [Unknown]
  - Stress [Unknown]
  - Panic attack [Unknown]
  - Thinking abnormal [Unknown]
  - Asthenia [Unknown]
  - Hallucination, auditory [Unknown]
  - Drug ineffective [Unknown]
  - Memory impairment [Unknown]
  - Somnolence [Unknown]
